FAERS Safety Report 5655860-3 (Version None)
Quarter: 2008Q1

REPORT INFORMATION
  Report Type: 
  Country: None (occurrence: None)
  Receive Date: 20080212
  Receipt Date: 20070111
  Transmission Date: 20080703
  Serious: Yes (Hospitalization)
  Sender: FDA-Public Use
  Company Number: MC200700036

PATIENT
  Age: 76 Year
  Sex: Female

DRUGS (3)
  1. ANGIOMAX [Suspect]
     Indication: PERCUTANEOUS CORONARY INTERVENTION
     Dosage: 0.75 MG/KG, BOLUS, IV BOLUS ; 1.75 MG/KG, HR, INTRAVENOUS
     Route: 040
     Dates: start: 20070111, end: 20070111
  2. ANGIOMAX [Suspect]
     Indication: PERCUTANEOUS CORONARY INTERVENTION
     Dosage: 0.75 MG/KG, BOLUS, IV BOLUS ; 1.75 MG/KG, HR, INTRAVENOUS
     Route: 040
     Dates: start: 20070111, end: 20070111
  3. PLAVIX /01220701/ (CLOPIDOGREL), 600 MG [Concomitant]

REACTIONS (1)
  - ARTERIAL THROMBOSIS [None]
